FAERS Safety Report 9366924 (Version 1)
Quarter: 2013Q2

REPORT INFORMATION
  Report Type: Spontaneous
  Country: IT (occurrence: None)
  Receive Date: 20130621
  Receipt Date: 20130621
  Transmission Date: 20140414
  Serious: Yes (Hospitalization)
  Sender: FDA-Public Use
  Company Number: DSM-2013-00572

PATIENT
  Age: 79 Year
  Sex: Female

DRUGS (6)
  1. OLPREZIDE (HYDROCHLOROTHIAZIDE, OLMESARTAN MEDOXOMIL) TABLET (HYDROCHLOROTHIAZIDE, OLMESARTAN MEDOXOMIL) (TABLET) [Suspect]
     Indication: HYPERTENSION
     Route: 048
     Dates: start: 20130201, end: 20130604
  2. CIPROXIN [Suspect]
     Indication: PRODUCT USED FOR UNKNOWN INDICATION
     Dosage: 1000 MG (500 MG, 2 IN 1 D), ORAL
     Route: 048
     Dates: start: 20130529, end: 20130605
  3. BISOPROLOL FUMARATE (BISOPROLOL FUMARATE) (BISOPROLOL FUMARATE) [Concomitant]
  4. LEVOTHYROXINE SODIUM (LEVOTHYROXINE SODIUM) (LEVOTHYROXINE SODIUM) [Concomitant]
  5. FLAGYL (METRONIDAZOLE) (METRONIDAZOLE) [Concomitant]
  6. COUMADIN (WARFARIN SODIUM) (5 MILLIGRAM) (WARFARIN SODIUM) [Concomitant]

REACTIONS (5)
  - Drug interaction [None]
  - Hypotension [None]
  - Syncope [None]
  - Renal failure acute [None]
  - Blood creatinine increased [None]
